FAERS Safety Report 15674660 (Version 5)
Quarter: 2019Q1

REPORT INFORMATION
  Report Type: Report from Study
  Country: DE (occurrence: DE)
  Receive Date: 20181130
  Receipt Date: 20190108
  Transmission Date: 20190417
  Serious: Yes (Hospitalization)
  Sender: FDA-Public Use
  Company Number: DE-ROCHE-2219900

PATIENT
  Age: 60 Year
  Sex: Female
  Weight: 101 kg

DRUGS (3)
  1. COBIMETINIB. [Suspect]
     Active Substance: COBIMETINIB
     Indication: METASTATIC MALIGNANT MELANOMA
     Dosage: DATE OF MOST RECENT ADMINISTRATION BEFORE SAE ONSET: 10/DEC/2018
     Route: 048
     Dates: start: 20181108
  2. VEMURAFENIB. [Suspect]
     Active Substance: VEMURAFENIB
     Indication: METASTATIC MALIGNANT MELANOMA
     Dosage: DATE OF MOST RECENT ADMINISTRATION BEFORE SAE ONSET: 10/DEC/2018
     Route: 048
     Dates: start: 20181108
  3. DEXAMETHASON [Concomitant]
     Active Substance: DEXAMETHASONE

REACTIONS (5)
  - Sensory disturbance [Not Recovered/Not Resolved]
  - Pneumonitis [Recovered/Resolved]
  - Visual impairment [Not Recovered/Not Resolved]
  - Gait disturbance [Not Recovered/Not Resolved]
  - Malaise [Recovered/Resolved]

NARRATIVE: CASE EVENT DATE: 20181119
